FAERS Safety Report 8381161-9 (Version None)
Quarter: 2012Q2

REPORT INFORMATION
  Report Type: 
  Country: None (occurrence: None)
  Receive Date: 20120522
  Receipt Date: 20120510
  Transmission Date: 20120825
  Serious: Yes (Hospitalization, Other)
  Sender: FDA-Public Use
  Company Number: AVE_02185_2012

PATIENT
  Age: 77 Year
  Sex: Female

DRUGS (1)
  1. CLONIDINE [Suspect]
     Indication: BACK PAIN
     Dosage: (250 UG QD INTRATHECAL)
     Route: 037

REACTIONS (11)
  - HYPERHIDROSIS [None]
  - NEEDLE ISSUE [None]
  - DYSARTHRIA [None]
  - CONFUSIONAL STATE [None]
  - LEFT VENTRICULAR FAILURE [None]
  - HYPERTENSIVE CRISIS [None]
  - FLUID OVERLOAD [None]
  - INCORRECT DOSE ADMINISTERED BY DEVICE [None]
  - HYPERTENSION [None]
  - ACUTE PULMONARY OEDEMA [None]
  - DYSPNOEA [None]
